FAERS Safety Report 13183280 (Version 1)
Quarter: 2017Q1

REPORT INFORMATION
  Report Type: Spontaneous
  Country: US (occurrence: US)
  Receive Date: 20170203
  Receipt Date: 20170203
  Transmission Date: 20170428
  Serious: No
  Sender: FDA-Public Use
  Company Number: US-ASTRAZENECA-2017SE09141

PATIENT
  Sex: Male

DRUGS (1)
  1. SYMBICORT [Suspect]
     Active Substance: BUDESONIDE\FORMOTEROL FUMARATE DIHYDRATE
     Dosage: TWO PUFFS FROM AN OLD SYMBICORT INHALER BUT DID NOT FEEL IT SO HE TOOK AN ADDITIONAL TWO PUFFS
     Route: 055

REACTIONS (2)
  - Intentional product misuse [Unknown]
  - Dizziness [Recovered/Resolved]
